FAERS Safety Report 10639053 (Version 1)
Quarter: 2014Q4

REPORT INFORMATION
  Report Type: Spontaneous
  Country: US (occurrence: None)
  Receive Date: 20141121
  Receipt Date: 20141121
  Transmission Date: 20150529
  Serious: No
  Sender: FDA-Public Use
  Company Number: 163-10004-14074557

PATIENT
  Age: 50 Year
  Sex: Female

DRUGS (3)
  1. OTEZLA [Suspect]
     Active Substance: APREMILAST
     Indication: PSORIATIC ARTHROPATHY
     Dosage: 30 MG,  2 IN 1 D, PO
     Route: 048
     Dates: start: 20140715, end: 20140728
  2. VECTICAL [Concomitant]
     Active Substance: CALCITRIOL
  3. CLOBEX (CLOBETASOL) [Concomitant]

REACTIONS (3)
  - Headache [None]
  - Pain in jaw [None]
  - Myalgia [None]

NARRATIVE: CASE EVENT DATE: 201407
